APPROVED DRUG PRODUCT: TRAVOPROST
Active Ingredient: TRAVOPROST
Strength: 0.004%
Dosage Form/Route: SOLUTION/DROPS;OPHTHALMIC
Application: A207040 | Product #001
Applicant: LUPIN LTD
Approved: May 3, 2024 | RLD: No | RS: No | Type: DISCN